FAERS Safety Report 8509766-2 (Version None)
Quarter: 2012Q3

REPORT INFORMATION
  Report Type: 
  Country: None (occurrence: None)
  Receive Date: 20120713
  Receipt Date: 20120711
  Transmission Date: 20120928
  Serious: Yes (Death)
  Sender: FDA-Public Use
  Company Number: DE-SHIRE-ALL1-2012-03152

PATIENT
  Age: 23 Year
  Sex: Male
  Weight: 80 kg

DRUGS (2)
  1. MESALAMINE [Suspect]
     Indication: CROHN'S DISEASE
     Dosage: 2400 MG, 1X/DAY:QD
     Route: 048
     Dates: start: 20120531, end: 20120628
  2. BUDESONIDE [Concomitant]
     Indication: CROHN'S DISEASE
     Dosage: 3 MG, 3X/DAY:TID
     Route: 065
     Dates: start: 20120606, end: 20120628

REACTIONS (3)
  - OFF LABEL USE [None]
  - PULMONARY HAEMORRHAGE [None]
  - DYSPNOEA [None]
